FAERS Safety Report 17388010 (Version 1)
Quarter: 2020Q1

REPORT INFORMATION
  Report Type: Spontaneous
  Country: US (occurrence: US)
  Receive Date: 20200206
  Receipt Date: 20200206
  Transmission Date: 20200409
  Serious: No
  Sender: FDA-Public Use
  Company Number: NVSC2020US030793

PATIENT
  Age: 14 Year

DRUGS (1)
  1. MONTELUKAST [Suspect]
     Active Substance: MONTELUKAST SODIUM
     Indication: ASTHMA
     Dosage: 0.8 MG/KG, UNK
     Route: 048

REACTIONS (3)
  - Lethargy [Unknown]
  - Somnolence [Unknown]
  - Prescribed overdose [Unknown]
